FAERS Safety Report 13096643 (Version 1)
Quarter: 2017Q1

REPORT INFORMATION
  Report Type: Spontaneous
  Country: US (occurrence: US)
  Receive Date: 20170109
  Receipt Date: 20170109
  Transmission Date: 20170428
  Serious: Yes (Death, Hospitalization)
  Sender: FDA-Public Use
  Company Number: US-BAYER-2017-000886

PATIENT
  Age: 20 Year
  Sex: Female

DRUGS (8)
  1. NAPROXEN SODIUM ({= 220 MG) [Suspect]
     Active Substance: NAPROXEN SODIUM
     Dosage: UNK
     Route: 048
  2. OXYCODONE [Suspect]
     Active Substance: OXYCODONE
  3. IBUPROFEN. [Suspect]
     Active Substance: IBUPROFEN
  4. OXYMORPHONE [Suspect]
     Active Substance: OXYMORPHONE
  5. ALCOHOL. [Suspect]
     Active Substance: ALCOHOL
  6. TRAMADOL. [Suspect]
     Active Substance: TRAMADOL
  7. HYDROCODONE [Suspect]
     Active Substance: HYDROCODONE
  8. ACETAMINOPHEN. [Suspect]
     Active Substance: ACETAMINOPHEN

REACTIONS (1)
  - Toxicity to various agents [Fatal]
